FAERS Safety Report 18540419 (Version 1)
Quarter: 2020Q4

REPORT INFORMATION
  Report Type: Spontaneous
  Country: US (occurrence: US)
  Receive Date: 20201124
  Receipt Date: 20201124
  Transmission Date: 20210114
  Serious: No
  Sender: FDA-Public Use
  Company Number: US-PFIZER INC-2020284022

PATIENT
  Age: 58 Year
  Sex: Male

DRUGS (2)
  1. INLYTA [Suspect]
     Active Substance: AXITINIB
     Dosage: 7 MG, 2X/DAY (5 MG, 2X/DAY TO TAKE WITH 1 MG FOR A TOTAL OF 7 MG, 2X/DAY)
     Route: 048
  2. INLYTA [Suspect]
     Active Substance: AXITINIB
     Dosage: 10 MG, UNK

REACTIONS (2)
  - Neoplasm progression [Unknown]
  - Product prescribing error [Unknown]
